FAERS Safety Report 15640915 (Version 2)
Quarter: 2019Q1

REPORT INFORMATION
  Report Type: Report from Study
  Country: US (occurrence: US)
  Receive Date: 20181120
  Receipt Date: 20190119
  Transmission Date: 20190417
  Serious: Yes (Hospitalization)
  Sender: FDA-Public Use
  Company Number: US-ACTELION-A-NJ2018-182080

PATIENT
  Age: 66 Year
  Sex: Female
  Weight: 81.63 kg

DRUGS (3)
  1. ELIQUIS [Concomitant]
     Active Substance: APIXABAN
  2. TADALAFIL. [Concomitant]
     Active Substance: TADALAFIL
     Dosage: 20 MG, QD
     Dates: start: 201809
  3. OPSUMIT [Suspect]
     Active Substance: MACITENTAN
     Indication: PULMONARY HYPERTENSION
     Dosage: 10 MG, QD
     Route: 048
     Dates: start: 201810, end: 201811

REACTIONS (5)
  - Pulmonary oedema [Unknown]
  - Cardiac failure [Unknown]
  - Chest discomfort [Recovered/Resolved]
  - Diarrhoea [Recovered/Resolved]
  - Nausea [Recovered/Resolved]

NARRATIVE: CASE EVENT DATE: 201811
